FAERS Safety Report 8504641-1 (Version None)
Quarter: 2012Q3

REPORT INFORMATION
  Report Type: 
  Country: None (occurrence: None)
  Receive Date: 20120711
  Receipt Date: 20120203
  Transmission Date: 20120928
  Serious: Yes (Death)
  Sender: FDA-Public Use
  Company Number: US-ROCHE-1085982

PATIENT
  Sex: Male

DRUGS (2)
  1. ZELBORAF [Suspect]
     Indication: MALIGNANT MELANOMA
     Dates: start: 20110921, end: 20111020
  2. ZELBORAF [Suspect]
     Dates: start: 20111027, end: 20111121

REACTIONS (3)
  - MALIGNANT MELANOMA [None]
  - RASH [None]
  - FATIGUE [None]
